FAERS Safety Report 5692204-5 (Version None)
Quarter: 2008Q2

REPORT INFORMATION
  Report Type: 
  Country: None (occurrence: None)
  Receive Date: 20080402
  Receipt Date: 20080321
  Transmission Date: 20081010
  Serious: Yes (Other)
  Sender: FDA-Public Use
  Company Number: US-PFIZER INC-2008026177

PATIENT
  Sex: Female
  Weight: 58 kg

DRUGS (3)
  1. CHANTIX [Suspect]
     Indication: SMOKING CESSATION THERAPY
     Dates: start: 20071102, end: 20071102
  2. THYROID TAB [Concomitant]
  3. NEXIUM [Concomitant]

REACTIONS (3)
  - ANXIETY [None]
  - PANIC ATTACK [None]
  - VIOLENCE-RELATED SYMPTOM [None]
